FAERS Safety Report 7031970-3 (Version None)
Quarter: 2010Q4

REPORT INFORMATION
  Report Type: 
  Country: None (occurrence: None)
  Receive Date: 20101007
  Receipt Date: 20100925
  Transmission Date: 20110411
  Serious: No
  Sender: FDA-Public Use
  Company Number: IT-ELI_LILLY_AND_COMPANY-IT201009007189

PATIENT
  Age: 37 Year
  Sex: Female

DRUGS (3)
  1. ZYPREXA [Suspect]
     Dosage: UNK, UNKNOWN
     Route: 065
  2. ZYPREXA [Suspect]
     Dosage: 10 MG, DAILY (1/D)
  3. ZYPREXA [Suspect]
     Dosage: 2.5 MG, DAILY (1/D)

REACTIONS (3)
  - ENDOMETRIAL HYPERTROPHY [None]
  - MENORRHAGIA [None]
  - POLYP [None]
